FAERS Safety Report 5801551-5 (Version None)
Quarter: 2008Q3

REPORT INFORMATION
  Report Type: 
  Country: None (occurrence: None)
  Receive Date: 20080703
  Receipt Date: 20080703
  Transmission Date: 20090109
  Serious: Yes (Other)
  Sender: FDA-Public Use
  Company Number: None

PATIENT
  Age: 66 Year
  Sex: Female
  Weight: 70.3075 kg

DRUGS (4)
  1. LIPITOR [Suspect]
     Indication: BLOOD CHOLESTEROL INCREASED
     Dosage: 10 QD HS PO
     Route: 048
     Dates: start: 20010101, end: 20030101
  2. ZOCOR [Suspect]
     Indication: BLOOD CHOLESTEROL INCREASED
     Dosage: 20 MG QD HS PO
     Route: 048
     Dates: start: 20030101, end: 20050101
  3. VYTORIN [Suspect]
     Indication: BLOOD CHOLESTEROL INCREASED
     Dosage: 20 QD HS PO
     Route: 048
     Dates: start: 20050101, end: 20060101
  4. SIMVASTATIN [Suspect]
     Indication: BLOOD CHOLESTEROL INCREASED
     Dosage: 20MG/10 MG QD HS PO
     Route: 048
     Dates: start: 20070101, end: 20080101

REACTIONS (6)
  - BLOOD CHOLESTEROL INCREASED [None]
  - DISCOMFORT [None]
  - FEELING ABNORMAL [None]
  - GAIT DISTURBANCE [None]
  - HIGH DENSITY LIPOPROTEIN INCREASED [None]
  - PAIN IN EXTREMITY [None]
